FAERS Safety Report 8924652 (Version 1)
Quarter: 2012Q4

REPORT INFORMATION
  Report Type: 
  Country: US (occurrence: US)
  Receive Date: 20121126
  Receipt Date: 20121126
  Transmission Date: 20130627
  Serious: No
  Sender: FDA-Public Use
  Company Number: US-BRISTOL-MYERS SQUIBB COMPANY-17023920

PATIENT
  Age: 37 Year
  Sex: Female
  Weight: 81.63 kg

DRUGS (1)
  1. KOMBIGLYZE XR [Suspect]
     Dosage: 1DF: 2.5/1000mg
     Dates: start: 201106

REACTIONS (2)
  - Weight decreased [Unknown]
  - Blood glucose decreased [Unknown]
